FAERS Safety Report 4860126-5 (Version None)
Quarter: 2005Q4

REPORT INFORMATION
  Report Type: 
  Country: None (occurrence: None)
  Receive Date: 20051215
  Receipt Date: 20051205
  Transmission Date: 20060501
  Serious: Yes (Hospitalization)
  Sender: FDA-Public Use
  Company Number: 2005-02858

PATIENT
  Age: 57 Year
  Sex: Female

DRUGS (5)
  1. METFORMIN HYDROCHLORIDE [Suspect]
     Indication: DIABETES MELLITUS NON-INSULIN-DEPENDENT
     Dosage: 1000 MG, DAILY, ORAL
     Route: 048
     Dates: start: 20050201, end: 20050609
  2. METHADONE HCL [Concomitant]
  3. HYDROMORPHONE (HYDROMORPHONE) INJECTION [Concomitant]
  4. COLACE [Concomitant]
  5. CYMBALTA [Concomitant]

REACTIONS (14)
  - ABDOMINAL DISTENSION [None]
  - ANXIETY [None]
  - BLOOD GLUCOSE INCREASED [None]
  - BLOOD PRESSURE INCREASED [None]
  - CARDIAC FAILURE CONGESTIVE [None]
  - CHEST PAIN [None]
  - DRUG INEFFECTIVE [None]
  - DYSPNOEA [None]
  - FALL [None]
  - HYPERHIDROSIS [None]
  - NAUSEA [None]
  - SELF-MEDICATION [None]
  - SENSORY DISTURBANCE [None]
  - SYNCOPE [None]
